FAERS Safety Report 14349505 (Version 4)
Quarter: 2018Q1

REPORT INFORMATION
  Report Type: Report from Study
  Country: GB (occurrence: GB)
  Receive Date: 20180104
  Receipt Date: 20180118
  Transmission Date: 20180509
  Serious: Yes (Hospitalization)
  Sender: FDA-Public Use
  Company Number: GB-BRISTOL-MYERS SQUIBB COMPANY-BMS-2017-119233

PATIENT
  Age: 15 Year
  Sex: Female
  Weight: 82.8 kg

DRUGS (3)
  1. PARACETAMOL [Concomitant]
     Active Substance: ACETAMINOPHEN
     Indication: PRODUCT USED FOR UNKNOWN INDICATION
     Dosage: 1 G, UNK
     Route: 065
     Dates: start: 20171116
  2. NIVOLUMAB [Suspect]
     Active Substance: NIVOLUMAB
     Indication: EPENDYMOMA
     Dosage: 249 MG, Q3WK
     Route: 042
     Dates: start: 20171130
  3. IPILIMUMAB [Suspect]
     Active Substance: IPILIMUMAB
     Indication: EPENDYMOMA
     Dosage: 83 MG, Q3WK
     Route: 042
     Dates: start: 20171130

REACTIONS (3)
  - Vomiting [Recovered/Resolved]
  - Nausea [Recovered/Resolved]
  - Headache [Recovered/Resolved]

NARRATIVE: CASE EVENT DATE: 20171225
